FAERS Safety Report 4462516-1 (Version None)
Quarter: 2004Q3

REPORT INFORMATION
  Report Type: 
  Country: None (occurrence: None)
  Receive Date: 20040924
  Receipt Date: 20040910
  Transmission Date: 20050211
  Serious: Yes (Hospitalization)
  Sender: FDA-Public Use
  Company Number: 2004-0007474

PATIENT
  Age: 31 Year
  Sex: Male

DRUGS (6)
  1. VISTIDE [Suspect]
     Indication: LEUKOENCEPHALOPATHY
     Dosage: 300 MG, INTRAVENOUS
     Route: 042
     Dates: start: 20030905, end: 20040722
  2. BENEMIDE (PROBENECID) [Suspect]
     Dates: start: 20030101, end: 20040722
  3. LOVENOX [Concomitant]
  4. NEURONTIN [Concomitant]
  5. LAMICTAL [Concomitant]
  6. DANTRIUM [Concomitant]

REACTIONS (1)
  - ERYTHEMA MULTIFORME [None]
